FAERS Safety Report 5942720-3 (Version None)
Quarter: 2008Q4

REPORT INFORMATION
  Report Type: 
  Country: None (occurrence: None)
  Receive Date: 20081106
  Receipt Date: 20081027
  Transmission Date: 20090506
  Serious: Yes (Other)
  Sender: FDA-Public Use
  Company Number: US-JNJFOC-20081006932

PATIENT
  Sex: Male
  Weight: 40.82 kg

DRUGS (6)
  1. REMICADE [Suspect]
     Dosage: 2ND INFUSION
     Route: 042
  2. REMICADE [Suspect]
     Indication: CROHN'S DISEASE
     Dosage: 1ST INFUSION
     Route: 042
  3. PREDNISONE TAB [Concomitant]
     Indication: CROHN'S DISEASE
  4. METHOTREXATE [Concomitant]
     Indication: CROHN'S DISEASE
  5. BENADRYL [Concomitant]
     Indication: PREMEDICATION
  6. TYLENOL [Concomitant]
     Indication: PREMEDICATION

REACTIONS (3)
  - CONFUSIONAL STATE [None]
  - DEPRESSION [None]
  - EUPHORIC MOOD [None]
